FAERS Safety Report 9789876 (Version 1)
Quarter: 2013Q4

REPORT INFORMATION
  Report Type: Spontaneous
  Country: US (occurrence: None)
  Receive Date: 20131227
  Receipt Date: 20131227
  Transmission Date: 20140711
  Serious: Yes (Hospitalization)
  Sender: FDA-Public Use
  Company Number: 2013P1022104

PATIENT
  Age: 68 Year
  Sex: Female

DRUGS (10)
  1. CIPROFLOXACIN [Suspect]
     Indication: URINARY TRACT INFECTION
     Dates: start: 2008, end: 2012
  2. CIPROFLOXACIN [Suspect]
     Indication: SINUSITIS
     Dates: start: 2008, end: 2012
  3. ATORVASTATIN [Concomitant]
  4. DILTIAZEM [Concomitant]
  5. ESOMEPRAZOLE [Concomitant]
  6. LOSARTAN [Concomitant]
  7. COUMADIN [Concomitant]
  8. HYDRALAZINE [Concomitant]
  9. SOTALOL [Concomitant]
  10. LOSARTAN-HYDROCHLOROTHIAZIDE [Concomitant]

REACTIONS (6)
  - Fatigue [None]
  - Fatigue [None]
  - Blood pressure systolic increased [None]
  - Urinary tract infection [None]
  - Hyponatraemia [None]
  - Inappropriate antidiuretic hormone secretion [None]
